FAERS Safety Report 11615012 (Version 2)
Quarter: 2017Q1

REPORT INFORMATION
  Report Type: Report from Study
  Country: None (occurrence: BR)
  Receive Date: 20151009
  Receipt Date: 20170214
  Transmission Date: 20170428
  Serious: Yes (Hospitalization, Other)
  Sender: FDA-Public Use
  Company Number: BR-ABBVIE-15K-020-1475232-00

PATIENT
  Sex: Female

DRUGS (1)
  1. HUMIRA [Suspect]
     Active Substance: ADALIMUMAB
     Indication: RHEUMATOID ARTHRITIS
     Route: 058
     Dates: start: 20130310, end: 201402

REACTIONS (9)
  - Rash macular [Unknown]
  - Bacterial infection [Unknown]
  - Spinal cord injury [Unknown]
  - Tendon rupture [Unknown]
  - Infection [Unknown]
  - Purulent discharge [Unknown]
  - Tendon operation [Unknown]
  - Arthropathy [Unknown]
  - Infection [Unknown]

NARRATIVE: CASE EVENT DATE: 2014
